FAERS Safety Report 7279692-8 (Version None)
Quarter: 2011Q1

REPORT INFORMATION
  Report Type: 
  Country: None (occurrence: None)
  Receive Date: 20110203
  Receipt Date: 20110203
  Transmission Date: 20110831
  Serious: Yes (Other)
  Sender: FDA-Public Use
  Company Number: None

PATIENT
  Age: 60 Year
  Sex: Female
  Weight: 68.0396 kg

DRUGS (3)
  1. SERTRALINE HYDROCHLORIDE [Suspect]
     Indication: IRRITABILITY
     Dosage: ONE DAILY PO
     Route: 048
     Dates: start: 20080301, end: 20090101
  2. ESTROGENIC SUBSTANCE [Suspect]
  3. METOPROLOL TARTRATE [Suspect]

REACTIONS (3)
  - ACTIVITIES OF DAILY LIVING IMPAIRED [None]
  - MALAISE [None]
  - ARRHYTHMIA [None]
